FAERS Safety Report 8190335-1 (Version None)
Quarter: 2012Q1

REPORT INFORMATION
  Report Type: 
  Country: None (occurrence: None)
  Receive Date: 20120305
  Receipt Date: 20120217
  Transmission Date: 20120608
  Serious: Yes (Other)
  Sender: FDA-Public Use
  Company Number: 2011SGN00241

PATIENT
  Sex: Female

DRUGS (1)
  1. ADCETRIS [Suspect]
     Indication: PRODUCT USED FOR UNKNOWN INDICATION
     Dosage: 75 MG, SINGLE, INTRAVENOUS
     Route: 042
     Dates: start: 20110101, end: 20111012

REACTIONS (8)
  - PHARYNGEAL OEDEMA [None]
  - INFUSION RELATED REACTION [None]
  - SWELLING FACE [None]
  - DYSPNOEA [None]
  - PRURITUS [None]
  - COUGH [None]
  - RETCHING [None]
  - EYE SWELLING [None]
